FAERS Safety Report 8274417-1 (Version None)
Quarter: 2012Q2

REPORT INFORMATION
  Report Type: 
  Country: None (occurrence: None)
  Receive Date: 20120411
  Receipt Date: 20120405
  Transmission Date: 20120825
  Serious: Yes (Hospitalization)
  Sender: FDA-Public Use
  Company Number: FR-PFIZER INC-2012074348

PATIENT
  Sex: Male
  Weight: 72 kg

DRUGS (21)
  1. HYDROCORTISONE [Concomitant]
     Indication: BLOOD CORTICOTROPHIN DECREASED
     Dosage: 10 MG, 1X/DAY
     Route: 048
     Dates: start: 20050119, end: 20060226
  2. HYDROCORTISONE [Concomitant]
     Dosage: 20 MG, 1X/DAY
     Route: 048
     Dates: start: 20060227, end: 20100201
  3. VALPROIC ACID [Concomitant]
     Indication: MAJOR DEPRESSION
     Dosage: 300 UNK, UNK
     Route: 048
     Dates: start: 20070601
  4. EFFEXOR [Concomitant]
     Indication: MAJOR DEPRESSION
     Dosage: 37.5 UNK, UNK
     Route: 048
     Dates: start: 20070601
  5. AMLODIPINE BESYLATE [Concomitant]
     Indication: ESSENTIAL HYPERTENSION
     Dosage: 5 UNK, UNK
     Route: 048
     Dates: start: 20070601
  6. LEVOTHYROXINE SODIUM [Concomitant]
     Indication: BLOOD THYROID STIMULATING HORMONE DECREASED
     Dosage: UNK
     Route: 048
     Dates: start: 20070119
  7. MINIRIN ^AVENTIS PHARMA^ [Concomitant]
     Indication: BLOOD ANTIDIURETIC HORMONE DECREASED
     Dosage: UNK
     Route: 048
     Dates: start: 20050119
  8. INDAPAMIDE [Concomitant]
     Indication: ESSENTIAL HYPERTENSION
     Dosage: UNK
     Route: 048
     Dates: start: 20060601
  9. CLAVULANATE POTASSIUM [Concomitant]
     Indication: BACTERIAL INFECTION
     Dosage: UNK
     Dates: start: 20070723, end: 20070927
  10. SOMATROPIN RDNA [Suspect]
     Dosage: 0.2 MG, 1X/DAY
     Dates: start: 20050119
  11. HUMALOG [Concomitant]
     Indication: DIABETES MELLITUS
     Dosage: UNK
     Dates: start: 20070723
  12. LEVOTHYROXINE SODIUM [Concomitant]
     Indication: PRIMARY HYPOTHYROIDISM
  13. ANDROTARDYL [Concomitant]
     Indication: HYPOGONADISM MALE
  14. ASPIRIN [Concomitant]
     Indication: ESSENTIAL HYPERTENSION
     Dosage: 75 UNK, UNK
     Route: 048
     Dates: start: 20050101
  15. VANCOMYCIN [Concomitant]
     Indication: BACTERIAL INFECTION
     Dosage: UNK
     Dates: start: 20070723, end: 20070924
  16. HYDROCORTISONE [Concomitant]
     Dosage: UNK
     Dates: start: 20100202
  17. LANTUS [Concomitant]
     Indication: DIABETES MELLITUS
     Dosage: UNK
     Dates: start: 20070723
  18. AMISULPRIDE [Concomitant]
     Indication: MAJOR DEPRESSION
     Dosage: 100 UNK, UNK
     Route: 048
     Dates: start: 20070601
  19. ANDROTARDYL [Concomitant]
     Indication: BLOOD LUTEINISING HORMONE DECREASED
     Dosage: UNK
     Dates: start: 20060227
  20. ANDROTARDYL [Concomitant]
     Indication: BLOOD FOLLICLE STIMULATING HORMONE DECREASED
  21. COZAAR [Concomitant]
     Indication: ESSENTIAL HYPERTENSION
     Dosage: UNK
     Route: 048
     Dates: start: 20050101

REACTIONS (1)
  - RENAL FAILURE [None]
